FAERS Safety Report 6643365-2 (Version None)
Quarter: 2010Q1

REPORT INFORMATION
  Report Type: 
  Country: None (occurrence: None)
  Receive Date: 20100319
  Receipt Date: 20100312
  Transmission Date: 20100710
  Serious: Yes (Hospitalization)
  Sender: FDA-Public Use
  Company Number: PHHO2009SE13883

PATIENT
  Sex: Female
  Weight: 57 kg

DRUGS (1)
  1. CERTICAN [Suspect]
     Indication: TRANSPLANT
     Dosage: 0.5 MG, BID
     Route: 048
     Dates: start: 20071130

REACTIONS (1)
  - PULMONARY EMBOLISM [None]
